FAERS Safety Report 13424123 (Version 1)
Quarter: 2017Q2

REPORT INFORMATION
  Report Type: Spontaneous
  Country: CA (occurrence: CA)
  Receive Date: 20170410
  Receipt Date: 20170410
  Transmission Date: 20170830
  Serious: Yes (Other)
  Sender: FDA-Public Use
  Company Number: CA-AMGEN-CANSP2017051248

PATIENT
  Age: 92 Year
  Sex: Female

DRUGS (1)
  1. PROLIA [Suspect]
     Active Substance: DENOSUMAB
     Indication: PRODUCT USED FOR UNKNOWN INDICATION
     Dosage: 60 MG, UNK
     Route: 058
     Dates: start: 2016

REACTIONS (5)
  - Chronic kidney disease [Unknown]
  - Angiodysplasia [Unknown]
  - Chest pain [Recovered/Resolved]
  - Rectal haemorrhage [Unknown]
  - Aortic valve disease [Unknown]
